FAERS Safety Report 22625976 (Version 1)
Quarter: 2023Q2

REPORT INFORMATION
  Report Type: Spontaneous
  Country: US (occurrence: None)
  Receive Date: 20230619
  Receipt Date: 20230619
  Transmission Date: 20230722
  Serious: No
  Sender: FDA-Public Use
  Company Number: None

PATIENT
  Age: 61 Year
  Sex: Female

DRUGS (1)
  1. AMBRISENTAN [Suspect]
     Active Substance: AMBRISENTAN
     Indication: Pulmonary hypertension
     Dosage: 10MG QD ORAL?
     Route: 048

REACTIONS (4)
  - Oedema peripheral [None]
  - Dyspnoea [None]
  - Therapy interrupted [None]
  - Brain natriuretic peptide increased [None]

NARRATIVE: CASE EVENT DATE: 20230524
